FAERS Safety Report 6807703-X (Version None)
Quarter: 2010Q2

REPORT INFORMATION
  Report Type: 
  Country: None (occurrence: None)
  Receive Date: 20100629
  Receipt Date: 20081126
  Transmission Date: 20101027
  Serious: No
  Sender: FDA-Public Use
  Company Number: US-PFIZER INC-2008099857

PATIENT
  Sex: Male

DRUGS (7)
  1. VIAGRA [Suspect]
     Indication: ERECTILE DYSFUNCTION
     Dates: start: 20080801
  2. THIAZIDES [Concomitant]
  3. BENAZEPRIL HYDROCHLORIDE [Concomitant]
  4. PAROXETINE [Concomitant]
  5. ALPRAZOLAM [Concomitant]
  6. ZOLPIDEM [Concomitant]
  7. AMLODIPINE BESYLATE AND BENAZEPRIL HCL [Concomitant]

REACTIONS (1)
  - DRUG INEFFECTIVE [None]
